FAERS Safety Report 8341282-3 (Version None)
Quarter: 2012Q2

REPORT INFORMATION
  Report Type: 
  Country: None (occurrence: None)
  Receive Date: 20120507
  Receipt Date: 20091130
  Transmission Date: 20120825
  Serious: No
  Sender: FDA-Public Use
  Company Number: US-TEVA-2009011658

PATIENT
  Sex: Male
  Weight: 78.542 kg

DRUGS (2)
  1. ALLOPURINOL [Suspect]
  2. TREANDA [Suspect]
     Indication: NON-HODGKIN'S LYMPHOMA
     Route: 042
     Dates: start: 20090831

REACTIONS (1)
  - RASH [None]
